FAERS Safety Report 4428754-9 (Version None)
Quarter: 2004Q3

REPORT INFORMATION
  Report Type: 
  Country: None (occurrence: None)
  Receive Date: 20040818
  Receipt Date: 20040426
  Transmission Date: 20050211
  Serious: No
  Sender: FDA-Public Use
  Company Number: US-BRISTOL-MYERS SQUIBB COMPANY-12570727

PATIENT
  Sex: Female

DRUGS (3)
  1. TEQUIN [Suspect]
     Indication: SINUSITIS
     Dosage: STARTED GATIFLOXACIN AGAIN FOR SINUSITIS IN JANUARY 2004
     Route: 048
     Dates: start: 20030101
  2. PREVACID [Concomitant]
  3. PROVENTIL [Concomitant]

REACTIONS (4)
  - EYE DISORDER [None]
  - PRURITUS [None]
  - RASH [None]
  - SWELLING FACE [None]
